FAERS Safety Report 8365816-8 (Version None)
Quarter: 2012Q2

REPORT INFORMATION
  Report Type: 
  Country: None (occurrence: None)
  Receive Date: 20120517
  Receipt Date: 20120503
  Transmission Date: 20120825
  Serious: Yes (Death, Hospitalization)
  Sender: FDA-Public Use
  Company Number: US-RANBAXY-2012US-56282

PATIENT
  Age: 39 Year
  Sex: Male

DRUGS (5)
  1. ARIPIPRAZOLE [Suspect]
     Indication: PRODUCT USED FOR UNKNOWN INDICATION
     Dosage: 2.5MG BID
     Route: 048
  2. ARIPIPRAZOLE [Suspect]
     Dosage: 7.5 MG, QD (AT BEDTIME)
     Route: 065
  3. VALPROIC ACID [Suspect]
     Indication: AGGRESSION
     Dosage: 250MG TID
     Route: 048
  4. DOXYCYCLINE HCL [Suspect]
     Indication: PRODUCT USED FOR UNKNOWN INDICATION
     Dosage: 100MG BID
     Route: 048
  5. TEMAZEPAM [Suspect]
     Indication: PRODUCT USED FOR UNKNOWN INDICATION
     Dosage: 30MG QD (AT NIGHT)
     Route: 048

REACTIONS (3)
  - CATATONIA [None]
  - BLOOD CREATINE PHOSPHOKINASE INCREASED [None]
  - PSYCHOTIC BEHAVIOUR [None]
